FAERS Safety Report 12088875 (Version 2)
Quarter: 2016Q4

REPORT INFORMATION
  Report Type: Spontaneous
  Country: BR (occurrence: BR)
  Receive Date: 20160218
  Receipt Date: 20161003
  Transmission Date: 20170206
  Serious: Yes (Other)
  Sender: FDA-Public Use
  Company Number: BR-GLAXOSMITHKLINE-BR2016GSK005039

PATIENT
  Age: 49 Year
  Sex: Male
  Weight: 80 kg

DRUGS (3)
  1. BENLYSTA [Suspect]
     Active Substance: BELIMUMAB
     Indication: SYSTEMIC LUPUS ERYTHEMATOSUS
     Dosage: FIRST
     Dates: start: 20150721
  2. BENLYSTA [Suspect]
     Active Substance: BELIMUMAB
     Dosage: FINAL DOSE
     Dates: start: 20160901
  3. BENLYSTA [Suspect]
     Active Substance: BELIMUMAB
     Dosage: PENULTIMATE
     Dates: start: 20160801

REACTIONS (6)
  - Inappropriate schedule of drug administration [Unknown]
  - Depression [Unknown]
  - Cough [Unknown]
  - Medication error [Unknown]
  - Systemic lupus erythematosus [Unknown]
  - Drug ineffective [Unknown]

NARRATIVE: CASE EVENT DATE: 201512
